FAERS Safety Report 16873158 (Version 1)
Quarter: 2019Q4

REPORT INFORMATION
  Report Type: Spontaneous
  Country: JP (occurrence: JP)
  Receive Date: 20191001
  Receipt Date: 20191001
  Transmission Date: 20200122
  Serious: Yes (Death, Other)
  Sender: FDA-Public Use
  Company Number: JP-BRISTOL-MYERS SQUIBB COMPANY-BMS-2019-026148

PATIENT
  Age: 61 Year
  Sex: Male
  Weight: 72 kg

DRUGS (1)
  1. OPDIVO [Suspect]
     Active Substance: NIVOLUMAB
     Indication: GASTRIC CANCER RECURRENT
     Dosage: UNK
     Route: 041
     Dates: start: 20171010

REACTIONS (6)
  - Spinal compression fracture [Unknown]
  - Interstitial lung disease [Not Recovered/Not Resolved]
  - Rash papular [Not Recovered/Not Resolved]
  - Jaundice cholestatic [Unknown]
  - Malignant neoplasm progression [Fatal]
  - Skin disorder [Unknown]

NARRATIVE: CASE EVENT DATE: 20171120
